FAERS Safety Report 7784526-9 (Version None)
Quarter: 2011Q3

REPORT INFORMATION
  Report Type: 
  Country: None (occurrence: None)
  Receive Date: 20110928
  Receipt Date: 20110922
  Transmission Date: 20111222
  Serious: Yes (Other)
  Sender: FDA-Public Use
  Company Number: US-ALEXION-A201101427

PATIENT
  Sex: Male

DRUGS (6)
  1. SOLIRIS [Suspect]
     Indication: PAROXYSMAL NOCTURNAL HAEMOGLOBINURIA
     Dosage: 600 MG, QW
     Route: 042
     Dates: start: 20110201
  2. PHOSLO [Concomitant]
     Dosage: UNK
  3. SOLIRIS [Suspect]
     Dosage: 900 MG, Q2W
     Route: 042
  4. ASPIRIN [Concomitant]
     Dosage: UNK
     Route: 048
  5. CALCITRIOL [Concomitant]
     Dosage: UNK
  6. METOPROLOL TARTRATE [Concomitant]
     Dosage: UNK
     Route: 048

REACTIONS (5)
  - ROAD TRAFFIC ACCIDENT [None]
  - DEAFNESS UNILATERAL [None]
  - NAUSEA [None]
  - VERTIGO [None]
  - VIRAL INFECTION [None]
